FAERS Safety Report 12855430 (Version 1)
Quarter: 2016Q4

REPORT INFORMATION
  Report Type: Spontaneous
  Country: JP (occurrence: JP)
  Receive Date: 20161017
  Receipt Date: 20161017
  Transmission Date: 20170207
  Serious: Yes (Other)
  Sender: FDA-Public Use
  Company Number: JP-GILEAD-2016-0238479

PATIENT
  Age: 63 Year
  Sex: Female

DRUGS (4)
  1. LAMIVUDINE. [Concomitant]
     Active Substance: LAMIVUDINE
     Route: 065
  2. ZIDOVUDINE. [Concomitant]
     Active Substance: ZIDOVUDINE
     Route: 065
  3. VIREAD [Suspect]
     Active Substance: TENOFOVIR DISOPROXIL FUMARATE
     Indication: ACQUIRED IMMUNODEFICIENCY SYNDROME
     Route: 048
  4. LOPINAVIR W/RITONAVIR [Concomitant]
     Active Substance: LOPINAVIR\RITONAVIR
     Route: 065

REACTIONS (1)
  - Diabetes mellitus [Unknown]
